FAERS Safety Report 5124029-3 (Version None)
Quarter: 2006Q4

REPORT INFORMATION
  Report Type: 
  Country: None (occurrence: None)
  Receive Date: 20061010
  Receipt Date: 20060927
  Transmission Date: 20070319
  Serious: Yes (Congenital Anomaly)
  Sender: FDA-Public Use
  Company Number: PHRM2006FR02688

PATIENT
  Age: 2 Day

DRUGS (3)
  1. PLAQUENIL [Concomitant]
     Route: 064
  2. ANTIEPILEPTICS [Suspect]
     Route: 064
  3. TRILEPTAL [Suspect]
     Dosage: UNK, UNK
     Route: 064
     Dates: start: 20060801, end: 20060901

REACTIONS (2)
  - CHONDRODYSTROPHY [None]
  - DRUG EXPOSURE DURING PREGNANCY [None]
